FAERS Safety Report 6527080-1 (Version None)
Quarter: 2009Q4

REPORT INFORMATION
  Report Type: 
  Country: None (occurrence: None)
  Receive Date: 20091229
  Receipt Date: 20091209
  Transmission Date: 20100525
  Serious: Yes (Hospitalization)
  Sender: FDA-Public Use
  Company Number: 8054119

PATIENT
  Sex: Male

DRUGS (2)
  1. KEPPRA [Suspect]
     Dates: start: 20080830, end: 20090830
  2. RIVOTRIL (RIVOTRIL) (NOT SPECIFIED) [Suspect]
     Dates: start: 20080830, end: 20090830

REACTIONS (1)
  - URTICARIA [None]
